FAERS Safety Report 6885979-0 (Version None)
Quarter: 2010Q3

REPORT INFORMATION
  Report Type: 
  Country: None (occurrence: None)
  Receive Date: 20100729
  Receipt Date: 20090105
  Transmission Date: 20110219
  Serious: No
  Sender: FDA-Public Use
  Company Number: US-PFIZER INC-2009152058

PATIENT
  Sex: Female
  Weight: 63.5 kg

DRUGS (5)
  1. CELEBREX [Suspect]
  2. LYRICA [Suspect]
     Dosage: 75 MG, 2X/DAY
     Dates: start: 20081001
  3. ORAL CONTRACEPTIVE NOS [Concomitant]
  4. IBUPROFEN [Concomitant]
  5. FLEXERIL [Concomitant]

REACTIONS (2)
  - PRURITUS [None]
  - URTICARIA [None]
